FAERS Safety Report 18863693 (Version 2)
Quarter: 2021Q1

REPORT INFORMATION
  Report Type: Spontaneous
  Country: IT (occurrence: IT)
  Receive Date: 20210209
  Receipt Date: 20210226
  Transmission Date: 20210420
  Serious: Yes (Other)
  Sender: FDA-Public Use
  Company Number: IT-AUROBINDO-AUR-APL-2021-004944

PATIENT
  Age: 41 Year
  Sex: Female

DRUGS (12)
  1. FLUOROURACIL. [Suspect]
     Active Substance: FLUOROURACIL
     Indication: CYSTADENOCARCINOMA PANCREAS
     Dosage: 2400 MG/M2 (46 H CONTINUOUS INFUSION, EVERY TWO WEEKS)
     Route: 065
     Dates: start: 2019
  2. FLUOROURACIL. [Suspect]
     Active Substance: FLUOROURACIL
     Indication: METASTASES TO OVARY
  3. FOLINIC ACID [Suspect]
     Active Substance: LEUCOVORIN
     Indication: CYSTADENOCARCINOMA PANCREAS
  4. IRINOTECAN [Suspect]
     Active Substance: IRINOTECAN
     Indication: METASTASES TO OVARY
  5. IRINOTECAN [Suspect]
     Active Substance: IRINOTECAN
     Indication: CYSTADENOCARCINOMA PANCREAS
  6. OXALIPLATIN. [Suspect]
     Active Substance: OXALIPLATIN
     Indication: CYSTADENOCARCINOMA PANCREAS
  7. IRINOTECAN [Suspect]
     Active Substance: IRINOTECAN
     Indication: METASTASES TO PERITONEUM
     Dosage: 180 MG/M2 (8, CYCLE)
     Route: 065
     Dates: start: 2019
  8. OXALIPLATIN. [Suspect]
     Active Substance: OXALIPLATIN
     Indication: METASTASES TO PERITONEUM
     Dosage: 85 MG/M2 (8 CYCLE)
     Route: 065
     Dates: start: 2019
  9. FLUOROURACIL. [Suspect]
     Active Substance: FLUOROURACIL
     Indication: METASTASES TO PERITONEUM
     Dosage: 400 MG/M2 (BOLUS)
     Route: 065
     Dates: start: 2019
  10. FOLINIC ACID [Suspect]
     Active Substance: LEUCOVORIN
     Indication: METASTASES TO PERITONEUM
     Dosage: 400 MG/M2 (8, CYCLE)
     Route: 065
     Dates: start: 2019
  11. OXALIPLATIN. [Suspect]
     Active Substance: OXALIPLATIN
     Indication: METASTASES TO OVARY
  12. FOLINIC ACID [Suspect]
     Active Substance: LEUCOVORIN
     Indication: METASTASES TO OVARY

REACTIONS (3)
  - Vomiting [Unknown]
  - Toxicity to various agents [Unknown]
  - Febrile neutropenia [Unknown]

NARRATIVE: CASE EVENT DATE: 2019
